FAERS Safety Report 7265456-8 (Version None)
Quarter: 2011Q1

REPORT INFORMATION
  Report Type: 
  Country: None (occurrence: None)
  Receive Date: 20110131
  Receipt Date: 20110120
  Transmission Date: 20110831
  Serious: Yes (Hospitalization, Other)
  Sender: FDA-Public Use
  Company Number: US-ASTRAZENECA-2011SE03880

PATIENT
  Sex: Male

DRUGS (2)
  1. PRILOSEC [Suspect]
     Route: 048
  2. PRILOSEC OTC [Suspect]
     Route: 048

REACTIONS (5)
  - WEIGHT DECREASED [None]
  - GASTRECTOMY [None]
  - GASTRIC CANCER [None]
  - GASTRIC DISORDER [None]
  - VOMITING [None]
